FAERS Safety Report 24374162 (Version 1)
Quarter: 2024Q3

REPORT INFORMATION
  Report Type: Spontaneous
  Country: US (occurrence: US)
  Receive Date: 20240927
  Receipt Date: 20240927
  Transmission Date: 20241017
  Serious: Yes (Life-Threatening, Hospitalization, Other)
  Sender: PFIZER
  Company Number: US-PFIZER INC-PV202400125174

PATIENT
  Age: 53 Year
  Sex: Female

DRUGS (1)
  1. BOSUTINIB [Suspect]
     Active Substance: BOSUTINIB
     Indication: Chronic myeloid leukaemia
     Dosage: UNK

REACTIONS (3)
  - Nephropathy toxic [Recovered/Resolved]
  - Renal failure [Recovered/Resolved]
  - Right ventricular failure [Recovered/Resolved]
